FAERS Safety Report 12764420 (Version 1)
Quarter: 2016Q3

REPORT INFORMATION
  Report Type: Spontaneous
  Country: FR (occurrence: FR)
  Receive Date: 20160920
  Receipt Date: 20160920
  Transmission Date: 20161109
  Serious: Yes (Hospitalization, Other)
  Sender: FDA-Public Use
  Company Number: FR-GLAXOSMITHKLINE-FR2016GSK137357

PATIENT
  Age: 80 Year
  Sex: Female

DRUGS (13)
  1. TAHOR [Concomitant]
     Active Substance: ATORVASTATIN CALCIUM
  2. LANTUS [Concomitant]
     Active Substance: INSULIN GLARGINE
  3. AMLOR [Concomitant]
     Active Substance: AMLODIPINE BESYLATE
  4. EFFERALGAN [Concomitant]
     Active Substance: ACETAMINOPHEN
  5. PREVISCAN (FLUINDIONE) [Concomitant]
     Active Substance: FLUINDIONE
  6. APROVEL [Suspect]
     Active Substance: IRBESARTAN
     Indication: HYPERTENSION
     Dosage: 150 MG, QD
     Route: 048
     Dates: end: 20160819
  7. EUPANTOL [Concomitant]
     Active Substance: PANTOPRAZOLE SODIUM
  8. VOLTARENE [Suspect]
     Active Substance: DICLOFENAC SODIUM
     Indication: BACK PAIN
     Dosage: 100 MG, QD
     Route: 048
     Dates: start: 20160401, end: 20160819
  9. LEVOTHYROX [Concomitant]
     Active Substance: LEVOTHYROXINE
  10. KARDEGIC [Concomitant]
     Active Substance: ASPIRIN LYSINE
  11. KAYEXALATE [Concomitant]
     Active Substance: SODIUM POLYSTYRENE SULFONATE
  12. LAMALINE [Concomitant]
     Active Substance: ACETAMINOPHEN\CAFFEINE\OPIUM
  13. TARDYFERON [Concomitant]
     Active Substance: FERROUS SULFATE

REACTIONS (1)
  - Acute kidney injury [Recovered/Resolved]

NARRATIVE: CASE EVENT DATE: 20160719
